FAERS Safety Report 7985462-5 (Version None)
Quarter: 2011Q4

REPORT INFORMATION
  Report Type: 
  Country: None (occurrence: None)
  Receive Date: 20111216
  Receipt Date: 20111206
  Transmission Date: 20120403
  Serious: Yes (Other)
  Sender: FDA-Public Use
  Company Number: CHPA2011CA017500

PATIENT
  Age: 44 Year
  Sex: Female

DRUGS (1)
  1. PRODIEM PLUS [Suspect]
     Indication: CONSTIPATION
     Dosage: 1-2 CAPLETS, PRN
     Route: 048
     Dates: end: 20111101

REACTIONS (7)
  - GASTROINTESTINAL TRACT MUCOSAL DISCOLOURATION [None]
  - SLEEP DISORDER [None]
  - CONSTIPATION [None]
  - DISEASE RECURRENCE [None]
  - DIARRHOEA [None]
  - DEHYDRATION [None]
  - ABDOMINAL PAIN [None]
